FAERS Safety Report 9302778 (Version 1)
Quarter: 2013Q2

REPORT INFORMATION
  Report Type: Spontaneous
  Country: US (occurrence: US)
  Receive Date: 20130522
  Receipt Date: 20130522
  Transmission Date: 20140414
  Serious: No
  Sender: FDA-Public Use
  Company Number: US-BAYER-2013-063422

PATIENT
  Age: 86 Year
  Sex: Male
  Weight: 63 kg

DRUGS (6)
  1. ALEVE CAPLET [Suspect]
     Dosage: UNK DF, UNK
     Route: 048
  2. OMEPRAZOLE [Concomitant]
  3. AMLODIPINE [Concomitant]
  4. TERAZOSIN [Concomitant]
  5. CITALOPRAM [Concomitant]
  6. CLORAZEPATE [Concomitant]

REACTIONS (1)
  - Incorrect dose administered [None]
